FAERS Safety Report 6379951-7 (Version None)
Quarter: 2009Q3

REPORT INFORMATION
  Report Type: 
  Country: None (occurrence: None)
  Receive Date: 20090928
  Receipt Date: 20081217
  Transmission Date: 20100115
  Serious: No
  Sender: FDA-Public Use
  Company Number: HQWYE770925JUN07

PATIENT
  Sex: Male

DRUGS (2)
  1. BENEFIX [Suspect]
     Indication: FACTOR IX DEFICIENCY
     Dosage: ^AS REQUIRED^
     Dates: start: 20040311, end: 20040311
  2. BENEFIX [Suspect]
     Dosage: ^AS REQUIRED^
     Dates: start: 20040609, end: 20040609

REACTIONS (3)
  - EPISTAXIS [None]
  - HAEMARTHROSIS [None]
  - PYREXIA [None]
